FAERS Safety Report 5413973-5 (Version None)
Quarter: 2007Q3

REPORT INFORMATION
  Report Type: 
  Country: None (occurrence: None)
  Receive Date: 20070814
  Receipt Date: 20070802
  Transmission Date: 20080115
  Serious: Yes (Other)
  Sender: FDA-Public Use
  Company Number: US-ELI_LILLY_AND_COMPANY-US200708000541

PATIENT
  Age: 49 Year
  Sex: Female

DRUGS (6)
  1. CYMBALTA [Suspect]
     Indication: PAIN
     Dosage: 60 MG, UNK
     Dates: start: 20070701
  2. CYMBALTA [Suspect]
     Dosage: 30 MG, UNK
  3. METHADONE HCL [Concomitant]
  4. FENTANYL [Concomitant]
  5. KLONOPIN [Concomitant]
  6. ESTROGEN NOS [Concomitant]

REACTIONS (13)
  - ABDOMINAL PAIN UPPER [None]
  - DEHYDRATION [None]
  - DISTURBANCE IN ATTENTION [None]
  - DYSPNOEA [None]
  - DYSURIA [None]
  - FATIGUE [None]
  - HYPOTENSION [None]
  - OEDEMA [None]
  - SOMNOLENCE [None]
  - URINARY HESITATION [None]
  - VERTIGO [None]
  - VISION BLURRED [None]
  - WEIGHT INCREASED [None]
